FAERS Safety Report 18714341 (Version 1)
Quarter: 2021Q1

REPORT INFORMATION
  Report Type: Spontaneous
  Country: FR (occurrence: FR)
  Receive Date: 20210107
  Receipt Date: 20210107
  Transmission Date: 20210419
  Serious: Yes (Hospitalization, Other)
  Sender: FDA-Public Use
  Company Number: FR-GILEAD-2021-0511697

PATIENT
  Age: 38 Year
  Sex: Male
  Weight: 83 kg

DRUGS (2)
  1. GENVOYA [Suspect]
     Active Substance: COBICISTAT\ELVITEGRAVIR\EMTRICITABINE\TENOFOVIR ALAFENAMIDE FUMARATE
     Indication: HIV INFECTION
     Dosage: 1 DOSAGE FORM Q 24 HOURS
     Route: 048
     Dates: start: 201803
  2. COLECALCIFEROL [Concomitant]
     Active Substance: CHOLECALCIFEROL
     Dosage: 2 ML PER 24 HOURS
     Route: 048

REACTIONS (1)
  - Oedematous pancreatitis [Unknown]

NARRATIVE: CASE EVENT DATE: 20201014
